FAERS Safety Report 20121416 (Version 1)
Quarter: 2021Q4

REPORT INFORMATION
  Report Type: Spontaneous
  Country: US (occurrence: None)
  Receive Date: 20211125
  Receipt Date: 20211125
  Transmission Date: 20220303
  Serious: Yes (Hospitalization)
  Sender: FDA-Public Use
  Company Number: None

PATIENT
  Age: 25 Year
  Sex: Female
  Weight: 75.4 kg

DRUGS (6)
  1. DAUNORUBICIN [Suspect]
     Active Substance: DAUNORUBICIN
     Indication: Product used for unknown indication
     Dates: start: 20211030, end: 20211112
  2. PEG/L-ASPARAGINASE [Suspect]
     Active Substance: PEGASPARGASE
     Dosage: OTHER STRENGTH : 3660 UNIT ;?
     Dates: start: 20211030, end: 20211102
  3. PREDNISOLONE [Suspect]
     Active Substance: PREDNISOLONE
     Indication: Product used for unknown indication
     Dates: start: 20211030, end: 20211116
  4. CYTARABINE [Suspect]
     Active Substance: CYTARABINE
     Indication: Product used for unknown indication
     Dates: start: 20211030, end: 20211112
  5. METHOTREXATE [Suspect]
     Active Substance: METHOTREXATE
     Dates: start: 20211030, end: 20211105
  6. VINCRISTINE SULFATE [Suspect]
     Active Substance: VINCRISTINE SULFATE
     Indication: Product used for unknown indication
     Dates: start: 20211030, end: 20211112

REACTIONS (9)
  - Escherichia sepsis [None]
  - Perirectal abscess [None]
  - Septic shock [None]
  - Pancytopenia [None]
  - Fasciitis [None]
  - Myositis [None]
  - Therapy interrupted [None]
  - Illness [None]
  - Thrombocytopenia [None]

NARRATIVE: CASE EVENT DATE: 20211116
